FAERS Safety Report 21147911 (Version 7)
Quarter: 2025Q4

REPORT INFORMATION
  Report Type: Spontaneous
  Country: CA (occurrence: CA)
  Receive Date: 20220729
  Receipt Date: 20251202
  Transmission Date: 20260118
  Serious: Yes (Life-Threatening, Hospitalization, Other)
  Sender: ALEXION PHARMACEUTICALS
  Company Number: 2021A182631

PATIENT
  Age: 34 Year
  Sex: Female

DRUGS (57)
  1. QUETIAPINE [Suspect]
     Active Substance: QUETIAPINE
     Indication: Mood altered
     Dosage: 4 DOSAGE FORM, QD
  2. QUETIAPINE [Suspect]
     Active Substance: QUETIAPINE
     Dosage: 5 DOSAGE FORM, QD
  3. QUETIAPINE [Suspect]
     Active Substance: QUETIAPINE
  4. OMALIZUMAB [Suspect]
     Active Substance: OMALIZUMAB
     Indication: Chronic spontaneous urticaria
     Dosage: 300 MILLIGRAM, UNK, FREQUENCY: UNK
  5. OMALIZUMAB [Suspect]
     Active Substance: OMALIZUMAB
  6. OMALIZUMAB [Suspect]
     Active Substance: OMALIZUMAB
     Dosage: 300 MILLIGRAM, UNK, FREQUENCY: UNK
  7. OMALIZUMAB [Suspect]
     Active Substance: OMALIZUMAB
     Dosage: 1 DOSAGE FORM, UNK, FREQUENCY: UNK
  8. OMALIZUMAB [Suspect]
     Active Substance: OMALIZUMAB
  9. OMALIZUMAB [Suspect]
     Active Substance: OMALIZUMAB
     Dosage: 1 DOSAGE FORM, UNK, FREQUENCY: UNK
  10. OMALIZUMAB [Suspect]
     Active Substance: OMALIZUMAB
  11. OMALIZUMAB [Suspect]
     Active Substance: OMALIZUMAB
     Dosage: 1 DOSAGE FORM, UNK, FREQUENCY: UNK
  12. OMALIZUMAB [Suspect]
     Active Substance: OMALIZUMAB
     Dosage: 1 DOSAGE FORM, UNK, FREQUENCY: UNK
  13. OMALIZUMAB [Suspect]
     Active Substance: OMALIZUMAB
     Dosage: 300 MILLIGRAM, UNK, FREQUENCY: UNK
  14. OMALIZUMAB [Suspect]
     Active Substance: OMALIZUMAB
     Dosage: 300 MILLIGRAM, UNK, FREQUENCY: UNK
  15. OMALIZUMAB [Suspect]
     Active Substance: OMALIZUMAB
     Dosage: 1 DOSAGE FORM, UNK, FREQUENCY: UNK
  16. OMALIZUMAB [Suspect]
     Active Substance: OMALIZUMAB
     Dosage: 300 MILLIGRAM, UNK, FREQUENCY: UNK
  17. OMALIZUMAB [Suspect]
     Active Substance: OMALIZUMAB
     Dosage: 300 MILLIGRAM, UNK, FREQUENCY: UNK
  18. OMALIZUMAB [Suspect]
     Active Substance: OMALIZUMAB
  19. OMALIZUMAB [Suspect]
     Active Substance: OMALIZUMAB
     Dosage: 1 DOSAGE FORM, UNK, FREQUENCY: UNK
  20. OMALIZUMAB [Suspect]
     Active Substance: OMALIZUMAB
     Dosage: 1 DOSAGE FORM, UNK, FREQUENCY: UNK
  21. OMALIZUMAB [Suspect]
     Active Substance: OMALIZUMAB
     Dosage: 300 MILLIGRAM, UNK, FREQUENCY: UNK
  22. OMALIZUMAB [Suspect]
     Active Substance: OMALIZUMAB
     Dosage: 300 MILLIGRAM, UNK, FREQUENCY: UNK
  23. OMALIZUMAB [Suspect]
     Active Substance: OMALIZUMAB
     Dosage: 1 DOSAGE FORM, UNK, FREQUENCY: UNK
  24. OMALIZUMAB [Suspect]
     Active Substance: OMALIZUMAB
     Dosage: 300 MILLIGRAM, UNK, FREQUENCY: UNK
  25. OMALIZUMAB [Suspect]
     Active Substance: OMALIZUMAB
     Dosage: 1 DOSAGE FORM, UNK, FREQUENCY: UNK
  26. OMALIZUMAB [Suspect]
     Active Substance: OMALIZUMAB
     Dosage: 1 DOSAGE FORM, UNK, FREQUENCY: UNK
  27. OMALIZUMAB [Suspect]
     Active Substance: OMALIZUMAB
  28. OMALIZUMAB [Suspect]
     Active Substance: OMALIZUMAB
     Dosage: 300 MILLIGRAM, UNK, FREQUENCY: UNK
  29. OMALIZUMAB [Suspect]
     Active Substance: OMALIZUMAB
     Dosage: 1 DOSAGE FORM, UNK, FREQUENCY: UNK
  30. OMALIZUMAB [Suspect]
     Active Substance: OMALIZUMAB
     Dosage: 1 DOSAGE FORM, UNK, FREQUENCY: UNK
  31. OMALIZUMAB [Suspect]
     Active Substance: OMALIZUMAB
     Dosage: 1 DOSAGE FORM, UNK, FREQUENCY: UNK
  32. OMALIZUMAB [Suspect]
     Active Substance: OMALIZUMAB
     Dosage: 300 MILLIGRAM, UNK, FREQUENCY: UNK
  33. OMALIZUMAB [Suspect]
     Active Substance: OMALIZUMAB
     Dosage: 300 MILLIGRAM, UNK, FREQUENCY: UNK
  34. OMALIZUMAB [Suspect]
     Active Substance: OMALIZUMAB
  35. OMALIZUMAB [Suspect]
     Active Substance: OMALIZUMAB
     Dosage: 300 MILLIGRAM, UNK, FREQUENCY: UNK
  36. OMALIZUMAB [Suspect]
     Active Substance: OMALIZUMAB
     Dosage: 1 DOSAGE FORM, UNK, FREQUENCY: UNK
  37. OMALIZUMAB [Suspect]
     Active Substance: OMALIZUMAB
     Dosage: 1 DOSAGE FORM, UNK, FREQUENCY: UNK
  38. OMALIZUMAB [Suspect]
     Active Substance: OMALIZUMAB
     Dosage: 300 MILLIGRAM, UNK, FREQUENCY: UNK
  39. OMALIZUMAB [Suspect]
     Active Substance: OMALIZUMAB
     Dosage: 300 MILLIGRAM, UNK, FREQUENCY: UNK
  40. OMALIZUMAB [Suspect]
     Active Substance: OMALIZUMAB
  41. CETIRIZINE HYDROCHLORIDE [Concomitant]
     Active Substance: CETIRIZINE HYDROCHLORIDE
     Indication: Chronic spontaneous urticaria
     Dosage: 3 DOSAGE FORM, QD
  42. CETIRIZINE HYDROCHLORIDE [Concomitant]
     Active Substance: CETIRIZINE HYDROCHLORIDE
     Dosage: 2 DOSAGE FORM, QD
  43. CETIRIZINE HYDROCHLORIDE [Concomitant]
     Active Substance: CETIRIZINE HYDROCHLORIDE
     Dosage: 3 DOSAGE FORM, QD
  44. CLARITIN [Concomitant]
     Active Substance: LORATADINE
     Indication: Chronic spontaneous urticaria
     Dosage: 2 DOSAGE FORM, BID
  45. CLARITIN [Concomitant]
     Active Substance: LORATADINE
     Dosage: 2 DOSAGE FORM, BID
  46. NAPROXEN [Concomitant]
     Active Substance: NAPROXEN
     Indication: Arthritis
     Dosage: 1 DOSAGE FORM, BID
  47. NAPROXEN [Concomitant]
     Active Substance: NAPROXEN
     Dosage: 1 DOSAGE FORM, BID
  48. RABEPRAZOLE [Concomitant]
     Active Substance: RABEPRAZOLE
     Indication: Gastric ulcer
     Dosage: 2 DOSAGE FORM, BID
  49. RABEPRAZOLE [Concomitant]
     Active Substance: RABEPRAZOLE
     Dosage: 2 DOSAGE FORM, BID
  50. ZANTAC [Concomitant]
     Active Substance: RANITIDINE HYDROCHLORIDE
     Indication: Chronic spontaneous urticaria
     Dosage: 2 DOSAGE FORM, BID
  51. ZANTAC [Concomitant]
     Active Substance: RANITIDINE HYDROCHLORIDE
     Dosage: 2 DOSAGE FORM, BID
  52. GABAPENTIN [Concomitant]
     Active Substance: GABAPENTIN
     Indication: Product used for unknown indication
     Route: 065
  53. GABAPENTIN [Concomitant]
     Active Substance: GABAPENTIN
     Route: 065
  54. BUTYLSCOPOLAMINE BROMIDE [Concomitant]
     Active Substance: BUTYLSCOPOLAMINE BROMIDE
     Indication: Product used for unknown indication
     Route: 065
  55. BUTYLSCOPOLAMINE BROMIDE [Concomitant]
     Active Substance: BUTYLSCOPOLAMINE BROMIDE
     Route: 065
  56. VITAMIN B12 [Concomitant]
     Active Substance: CYANOCOBALAMIN
     Indication: Product used for unknown indication
  57. VITAMIN D3 [Concomitant]
     Active Substance: CHOLECALCIFEROL
     Indication: Product used for unknown indication

REACTIONS (46)
  - Overdose [Not Recovered/Not Resolved]
  - Urinary tract infection [Not Recovered/Not Resolved]
  - Cystitis [Not Recovered/Not Resolved]
  - Carbon monoxide poisoning [Not Recovered/Not Resolved]
  - Suicide attempt [Not Recovered/Not Resolved]
  - Weight decreased [Not Recovered/Not Resolved]
  - Anxiety disorder [Not Recovered/Not Resolved]
  - Arthralgia [Not Recovered/Not Resolved]
  - Arthropod bite [Not Recovered/Not Resolved]
  - Bed bug infestation [Not Recovered/Not Resolved]
  - Blood pressure systolic increased [Not Recovered/Not Resolved]
  - Borderline personality disorder [Not Recovered/Not Resolved]
  - Breast mass [Not Recovered/Not Resolved]
  - Condition aggravated [Not Recovered/Not Resolved]
  - Depression [Not Recovered/Not Resolved]
  - Erythema [Not Recovered/Not Resolved]
  - Headache [Not Recovered/Not Resolved]
  - Limb discomfort [Not Recovered/Not Resolved]
  - Lower respiratory tract infection [Not Recovered/Not Resolved]
  - Mental disorder [Not Recovered/Not Resolved]
  - Mobility decreased [Not Recovered/Not Resolved]
  - Nasal congestion [Not Recovered/Not Resolved]
  - Nausea [Not Recovered/Not Resolved]
  - Pain [Not Recovered/Not Resolved]
  - Pain in extremity [Not Recovered/Not Resolved]
  - Paraesthesia [Not Recovered/Not Resolved]
  - Paraesthesia oral [Not Recovered/Not Resolved]
  - Pruritus [Not Recovered/Not Resolved]
  - Rash [Not Recovered/Not Resolved]
  - Respiratory fume inhalation disorder [Not Recovered/Not Resolved]
  - Rhinorrhoea [Not Recovered/Not Resolved]
  - Sensitivity to weather change [Not Recovered/Not Resolved]
  - Stress [Not Recovered/Not Resolved]
  - Vaginal haemorrhage [Not Recovered/Not Resolved]
  - COVID-19 [Not Recovered/Not Resolved]
  - Irritable bowel syndrome [Not Recovered/Not Resolved]
  - Body temperature increased [Not Recovered/Not Resolved]
  - Fatigue [Not Recovered/Not Resolved]
  - Heart rate increased [Not Recovered/Not Resolved]
  - Urticaria [Not Recovered/Not Resolved]
  - Weight increased [Not Recovered/Not Resolved]
  - Malaise [Not Recovered/Not Resolved]
  - Product dose omission issue [Not Recovered/Not Resolved]
  - Cough [Not Recovered/Not Resolved]
  - Dyspnoea [Not Recovered/Not Resolved]
  - Headache [Not Recovered/Not Resolved]
